FAERS Safety Report 18207659 (Version 11)
Quarter: 2023Q4

REPORT INFORMATION
  Report Type: Spontaneous
  Country: US (occurrence: US)
  Receive Date: 20200828
  Receipt Date: 20231115
  Transmission Date: 20240110
  Serious: No
  Sender: FDA-Public Use
  Company Number: US-PFIZER INC-2020332975

PATIENT
  Age: 62 Year
  Sex: Female
  Weight: 132.9 kg

DRUGS (4)
  1. IBRANCE [Suspect]
     Active Substance: PALBOCICLIB
     Indication: Breast cancer metastatic
     Dosage: UNK
     Dates: start: 20200810
  2. IBRANCE [Suspect]
     Active Substance: PALBOCICLIB
     Dosage: 125 MG
     Dates: start: 20200826, end: 20221220
  3. IBRANCE [Suspect]
     Active Substance: PALBOCICLIB
     Dosage: 125 MG, ONCE A DAY ON DAYS 1 TO 21 OF A 28 DAY CYCLE
     Route: 048
  4. FASLODEX [Concomitant]
     Active Substance: FULVESTRANT

REACTIONS (18)
  - Insomnia [Unknown]
  - Fatigue [Unknown]
  - Nausea [Unknown]
  - Emotional disorder [Unknown]
  - Asthma [Unknown]
  - Head injury [Unknown]
  - COVID-19 [Unknown]
  - Blood potassium increased [Unknown]
  - Blood creatinine increased [Unknown]
  - Protein total decreased [Unknown]
  - Red blood cell count decreased [Unknown]
  - Haemoglobin decreased [Unknown]
  - Haematocrit decreased [Unknown]
  - Mean cell volume increased [Unknown]
  - Mean cell haemoglobin increased [Unknown]
  - Red cell distribution width increased [Unknown]
  - Mean platelet volume decreased [Unknown]
  - Immature granulocyte count increased [Unknown]

NARRATIVE: CASE EVENT DATE: 20230912
